FAERS Safety Report 23712049 (Version 1)
Quarter: 2024Q2

REPORT INFORMATION
  Report Type: Spontaneous
  Country: US (occurrence: None)
  Receive Date: 20240404
  Receipt Date: 20240404
  Transmission Date: 20240716
  Serious: Yes (Other)
  Sender: FDA-Public Use
  Company Number: None

PATIENT
  Age: 32 Year
  Sex: Female
  Weight: 58.5 kg

DRUGS (1)
  1. KISQALI [Suspect]
     Active Substance: RIBOCICLIB
     Dosage: 600 MG DAILY ORAL?
     Route: 048
     Dates: start: 20240208

REACTIONS (7)
  - Physical product label issue [None]
  - Disorientation [None]
  - Dysstasia [None]
  - Tattoo associated skin reaction [None]
  - Pruritus [None]
  - Aura [None]
  - Photopsia [None]

NARRATIVE: CASE EVENT DATE: 20240404
